FAERS Safety Report 23496509 (Version 6)
Quarter: 2025Q4

REPORT INFORMATION
  Report Type: Report from Study
  Country: US (occurrence: US)
  Receive Date: 20240208
  Receipt Date: 20251119
  Transmission Date: 20260118
  Serious: Yes (Hospitalization, Other)
  Sender: AMNEAL
  Company Number: US-AMNEAL PHARMACEUTICALS-2024-AMRX-00297

PATIENT
  Age: 68 Year
  Sex: Male
  Weight: 84.354 kg

DRUGS (13)
  1. CARBIDOPA\LEVODOPA [Suspect]
     Active Substance: CARBIDOPA\LEVODOPA
     Indication: Parkinson^s disease
     Dosage: 48.75-195 MG, 3 CAPSULES, 3X/DAY
     Route: 048
  2. CARBIDOPA\LEVODOPA [Suspect]
     Active Substance: CARBIDOPA\LEVODOPA
     Dosage: 61.25/245 MG, 3 CAPSULES, 3X/DAY
     Route: 048
     Dates: start: 20230719
  3. CARBIDOPA\LEVODOPA [Suspect]
     Active Substance: CARBIDOPA\LEVODOPA
     Dosage: 61.25/245 MG, 03 CAPSULES, 3X/DAY, AND CAN TAKE 1-2 TABLETS BY MOUTH OVERNIGHT AS NEEDED
     Route: 048
     Dates: start: 20240223
  4. CARBIDOPA\LEVODOPA [Suspect]
     Active Substance: CARBIDOPA\LEVODOPA
     Dosage: 61.25/245 MG, 02 CAPSULES, 4X/DAY
     Route: 048
     Dates: start: 20240304
  5. CARBIDOPA\LEVODOPA [Suspect]
     Active Substance: CARBIDOPA\LEVODOPA
     Dosage: 61.25/245 MG, 03 CAPSULES, 3X/DAY AND CAN TAKE 1 ADDITIONAL CAPSULE OVERNIGHT IF NEEDED
     Route: 048
     Dates: start: 20240305
  6. CARBIDOPA\LEVODOPA [Suspect]
     Active Substance: CARBIDOPA\LEVODOPA
     Dosage: 36.25-145 MG 01 CAPSULE BY MOUTH TWICE DAILY AND 61.25/245 MG, 03 CAPSULES BY MOUTH AT  6AM, 2 CAPSU
     Route: 048
     Dates: start: 20240328
  7. CARBIDOPA\LEVODOPA [Suspect]
     Active Substance: CARBIDOPA\LEVODOPA
     Dosage: 61.25/245 MG, 03 CAPSULES BY MOUTH AT  6AM, 2 CAPSULES AT 11AM, AND 2 CAPSULES AT 4PM
     Route: 048
  8. CARBIDOPA\LEVODOPA [Suspect]
     Active Substance: CARBIDOPA\LEVODOPA
     Dosage: TAKE 1 CAPSULE AT 9 PM
     Route: 048
     Dates: start: 20240629
  9. CARBIDOPA\LEVODOPA [Suspect]
     Active Substance: CARBIDOPA\LEVODOPA
     Dosage: 1 CAPSULES (36.25-145 MG), 3 /DAY
  10. CARBIDOPA\LEVODOPA [Suspect]
     Active Substance: CARBIDOPA\LEVODOPA
     Dosage: RYTARY 145 MG, 1 CAPSULE AT 6 AM, 10 AM, 2 PM, 6 PM AND 10 PM AND ALSO RYTARY 245 MG 2 CAPSLUES AT 6
     Route: 048
     Dates: start: 20240703
  11. CARBIDOPA\LEVODOPA [Suspect]
     Active Substance: CARBIDOPA\LEVODOPA
     Dosage: (61.25-245MG) TAKE 2 CAPSULES BY MOUTH AT 6AM, 10AM, 2PM, 6PM, AND AT 10PM
     Route: 048
  12. CARBIDOPA\LEVODOPA [Suspect]
     Active Substance: CARBIDOPA\LEVODOPA
     Dosage: (61.25-245MG) TAKE 3 CAPS AT 6AM, 2 CAPS AT 10AM, 2 CAPS AT 2PM, 2 CAPS AT 6PM, AND 1 CAP AT 10PM
     Route: 048
     Dates: start: 20240731
  13. CARBIDOPA\LEVODOPA [Suspect]
     Active Substance: CARBIDOPA\LEVODOPA
     Dosage: 61.25-245 MG; 3 CAPSULES AT 6AM, 2 CAPSULES AT 1 0AM, 2 CAPSULES AT 2PM, 2 CAPSULES AT 6PM AND 1 CAP
     Route: 048

REACTIONS (9)
  - COVID-19 [Unknown]
  - Parkinson^s disease [Unknown]
  - Speech disorder [Unknown]
  - Multiple system atrophy [Unknown]
  - Drug effect less than expected [Unknown]
  - Product use issue [Unknown]
  - Product dose omission issue [Unknown]
  - Prescribed overdose [Unknown]
  - Therapy cessation [Unknown]

NARRATIVE: CASE EVENT DATE: 20240703
